FAERS Safety Report 4437955-5 (Version None)
Quarter: 2004Q3

REPORT INFORMATION
  Report Type: 
  Country: None (occurrence: None)
  Receive Date: 20040831
  Receipt Date: 20031014
  Transmission Date: 20050211
  Serious: Yes (Other)
  Sender: FDA-Public Use
  Company Number: JP-GLAXOSMITHKLINE-B0311891C

PATIENT
  Age: 30 Year
  Sex: Male

DRUGS (6)
  1. LAMIVUDINE [Suspect]
     Indication: HIV INFECTION
     Dosage: 150MG TWICE PER DAY
     Route: 048
     Dates: start: 19990823
  2. STAVUDINE [Suspect]
     Indication: HIV INFECTION
     Dosage: 80MG PER DAY
     Route: 048
     Dates: start: 19990823
  3. EFAVIRENZ [Suspect]
     Indication: HIV INFECTION
     Dosage: 600MG PER DAY
     Route: 048
     Dates: start: 19990823
  4. CLARITHROMYCIN [Suspect]
     Indication: TUBERCULOSIS PROPHYLAXIS
     Dosage: 800MG PER DAY
     Route: 048
     Dates: start: 19990715, end: 20020612
  5. GANCICLOVIR [Suspect]
     Indication: CYTOMEGALOVIRUS OESOPHAGITIS
     Dosage: 3G PER DAY
     Dates: start: 19991021, end: 20000908
  6. BAKTAR [Concomitant]
     Indication: INFECTION PROPHYLAXIS
     Dosage: 480MG PER DAY
     Route: 048

REACTIONS (3)
  - ATYPICAL MYCOBACTERIAL LYMPHADENITIS [None]
  - HYPERURICAEMIA [None]
  - LYMPHADENOPATHY [None]
